FAERS Safety Report 9175789 (Version 3)
Quarter: 2013Q2

REPORT INFORMATION
  Report Type: Report from Study
  Country: CA (occurrence: CA)
  Receive Date: 20130320
  Receipt Date: 20130419
  Transmission Date: 20140414
  Serious: Yes (Other)
  Sender: FDA-Public Use
  Company Number: CA-ROCHE-1203814

PATIENT
  Sex: Female
  Weight: 58.1 kg

DRUGS (10)
  1. RITUXAN [Suspect]
     Indication: RHEUMATOID ARTHRITIS
     Route: 042
     Dates: start: 20090817
  2. DIPHENHYDRAMINE HCL [Concomitant]
     Indication: PREMEDICATION
     Route: 048
     Dates: start: 20110928
  3. ACETAMINOPHEN [Concomitant]
     Indication: PREMEDICATION
     Route: 048
     Dates: start: 20110928
  4. METHYLPREDNISOLONE [Concomitant]
     Indication: PREMEDICATION
     Route: 042
     Dates: start: 20110928
  5. CELEBREX [Concomitant]
  6. PREDNISONE [Concomitant]
  7. PANTOLOC [Concomitant]
  8. ACTONEL [Concomitant]
  9. PROMETRIUM [Concomitant]
     Indication: HORMONE THERAPY
  10. ESTRACE [Concomitant]

REACTIONS (2)
  - Blood iron decreased [Not Recovered/Not Resolved]
  - Postmenopausal haemorrhage [Not Recovered/Not Resolved]
